FAERS Safety Report 10582919 (Version 2)
Quarter: 2014Q4

REPORT INFORMATION
  Report Type: Spontaneous
  Country: ZA (occurrence: ZA)
  Receive Date: 20141114
  Receipt Date: 20141121
  Transmission Date: 20150529
  Serious: Yes (Other)
  Sender: FDA-Public Use
  Company Number: ZA-009507513-1411ZAF005566

PATIENT
  Age: 8 Year
  Sex: Female

DRUGS (2)
  1. SINGULAIR [Suspect]
     Active Substance: MONTELUKAST SODIUM
     Dosage: 4 MG, QD
     Route: 048
     Dates: start: 20140922, end: 20141020
  2. SINGULAIR [Suspect]
     Active Substance: MONTELUKAST SODIUM
     Dosage: 4 MG, QD
     Route: 048
     Dates: start: 201211, end: 201212

REACTIONS (9)
  - Suicidal ideation [Not Recovered/Not Resolved]
  - Tremor [Unknown]
  - Abnormal dreams [Not Recovered/Not Resolved]
  - Abdominal pain upper [Unknown]
  - Hallucination, auditory [Recovered/Resolved]
  - Nightmare [Recovered/Resolved]
  - Depressive symptom [Unknown]
  - Emotional disorder [Unknown]
  - Self-injurious ideation [Not Recovered/Not Resolved]

NARRATIVE: CASE EVENT DATE: 2014
